FAERS Safety Report 4601075-7 (Version None)
Quarter: 2005Q1

REPORT INFORMATION
  Report Type: 
  Country: None (occurrence: None)
  Receive Date: 20050308
  Receipt Date: 20050224
  Transmission Date: 20050727
  Serious: Yes (Hospitalization, Disabling)
  Sender: FDA-Public Use
  Company Number: US-JNJFOC-20040801667

PATIENT
  Sex: Female
  Weight: 81.65 kg

DRUGS (13)
  1. REMICADE [Suspect]
     Route: 042
  2. REMICADE [Suspect]
     Route: 042
  3. REMICADE [Suspect]
     Route: 042
  4. REMICADE [Suspect]
     Indication: RHEUMATOID ARTHRITIS
     Dosage: TOTAL FOUR INFUSIONS FOR YEAR
     Route: 042
  5. METHOTREXATE [Concomitant]
  6. CELEBREX [Concomitant]
  7. PREMARIN [Concomitant]
  8. FOLIC ACID [Concomitant]
  9. NEURONTIN [Concomitant]
  10. CALCIUM GLUCONATE [Concomitant]
  11. VITAMIN D [Concomitant]
  12. COLACE [Concomitant]
  13. CELEXA [Concomitant]

REACTIONS (9)
  - ABDOMINAL MASS [None]
  - HEADACHE [None]
  - INFUSION RELATED REACTION [None]
  - INTERVERTEBRAL DISC PROTRUSION [None]
  - NEUROPATHY PERIPHERAL [None]
  - PRURITUS [None]
  - RASH [None]
  - THROMBOSIS [None]
  - URINARY TRACT INFECTION [None]
